FAERS Safety Report 26027601 (Version 1)
Quarter: 2025Q4

REPORT INFORMATION
  Report Type: Spontaneous
  Country: US (occurrence: US)
  Receive Date: 20251111
  Receipt Date: 20251111
  Transmission Date: 20260117
  Serious: No
  Sender: GRIFOLS
  Company Number: US-IGSA-BIG0039257

PATIENT
  Age: 68 Year
  Sex: Male

DRUGS (2)
  1. HUMAN IMMUNOGLOBULIN G [Suspect]
     Active Substance: HUMAN IMMUNOGLOBULIN G
     Indication: Guillain-Barre syndrome
     Dosage: UNK
  2. HUMAN IMMUNOGLOBULIN G [Suspect]
     Active Substance: HUMAN IMMUNOGLOBULIN G
     Indication: Off label use

REACTIONS (9)
  - Pyrexia [Unknown]
  - Night sweats [Unknown]
  - Abnormal loss of weight [Unknown]
  - Fatigue [Unknown]
  - Lymphadenopathy [Unknown]
  - Splenomegaly [Unknown]
  - Rash erythematous [Unknown]
  - Skin hyperpigmentation [Unknown]
  - Immune-mediated adverse reaction [Unknown]
